FAERS Safety Report 6886828-7 (Version None)
Quarter: 2010Q3

REPORT INFORMATION
  Report Type: 
  Country: None (occurrence: None)
  Receive Date: 20100730
  Receipt Date: 20100720
  Transmission Date: 20110219
  Serious: Yes (Death, Other)
  Sender: FDA-Public Use
  Company Number: US-PFIZER INC-2010041982

PATIENT
  Sex: Male
  Weight: 72.121 kg

DRUGS (1)
  1. CHANTIX [Suspect]
     Indication: CHRONIC OBSTRUCTIVE PULMONARY DISEASE
     Dosage: UNK
     Dates: start: 20100324, end: 20100325

REACTIONS (2)
  - COMPLETED SUICIDE [None]
  - SOFT TISSUE DISORDER [None]
